FAERS Safety Report 17737250 (Version 4)
Quarter: 2020Q3

REPORT INFORMATION
  Report Type: Report from Study
  Country: TW (occurrence: TW)
  Receive Date: 20200503
  Receipt Date: 20200812
  Transmission Date: 20201102
  Serious: Yes (Hospitalization)
  Sender: FDA-Public Use
  Company Number: TW-TAKEDA-2020TUS004091

PATIENT
  Age: 65 Year
  Sex: Female

DRUGS (1)
  1. VEDOLIZUMAB [Suspect]
     Active Substance: VEDOLIZUMAB
     Indication: CROHN^S DISEASE
     Dosage: 300 MILLIGRAM
     Route: 042
     Dates: start: 20191213

REACTIONS (5)
  - Surgery [Unknown]
  - Nosocomial infection [Unknown]
  - Nausea [Unknown]
  - Pyrexia [Unknown]
  - Vomiting [Unknown]

NARRATIVE: CASE EVENT DATE: 20200502
